FAERS Safety Report 6506798-0 (Version None)
Quarter: 2009Q4

REPORT INFORMATION
  Report Type: 
  Country: None (occurrence: None)
  Receive Date: 20091221
  Receipt Date: 20091028
  Transmission Date: 20100525
  Serious: Yes (Hospitalization)
  Sender: FDA-Public Use
  Company Number: US-ABBOTT-09P-163-0605442-00

PATIENT
  Sex: Male

DRUGS (16)
  1. HYTRIN [Suspect]
     Indication: PROSTATISM
     Route: 048
  2. HYTRIN [Suspect]
     Indication: BENIGN PROSTATIC HYPERPLASIA
  3. CC-4047 (ALPHA- (3-AMINOPHTHALIMIDO) [Suspect]
     Indication: MULTIPLE MYELOMA
     Dosage: DAYS 1-28
     Route: 048
     Dates: start: 20080314
  4. DEXAMETHASONE TAB [Suspect]
     Indication: MULTIPLE MYELOMA
     Dosage: DAYS 1, 8, 15, 22
     Route: 048
     Dates: start: 20080314
  5. ASPIRIN [Concomitant]
     Indication: ANTICOAGULANT THERAPY
     Route: 048
  6. COLACE [Concomitant]
     Indication: CONSTIPATION
     Route: 048
  7. HYDROCHLOROTHIAZIDE [Concomitant]
     Indication: BLOOD PRESSURE
     Dosage: DAILY
     Route: 048
  8. KLOR-CON [Concomitant]
     Indication: ELECTROLYTE SUBSTITUTION THERAPY
     Route: 048
  9. LISINOPRIL [Concomitant]
     Indication: BLOOD PRESSURE
     Route: 048
  10. MULTI-VITAMINS [Concomitant]
     Indication: DRUG USE FOR UNKNOWN INDICATION
     Route: 048
  11. PAXIL [Concomitant]
     Indication: AFFECTIVE DISORDER
     Dosage: 1/2 TABLET DAILY
     Route: 048
  12. PRILOSEC [Concomitant]
     Indication: GASTROOESOPHAGEAL REFLUX DISEASE
     Route: 048
  13. BACTRIM [Concomitant]
     Indication: INFECTION PROPHYLAXIS
     Dosage: 160MG-800MG, HALF TABLET DAILY
     Route: 048
  14. TYLENOL (CAPLET) [Concomitant]
     Indication: BACK PAIN
     Dosage: 1-2 TABLETS AS REQUIRED
     Route: 048
  15. ZOCOR [Concomitant]
     Indication: BLOOD CHOLESTEROL
     Route: 048
  16. ZOMETA [Concomitant]
     Indication: BONE DENSITY ABNORMAL
     Dosage: 4MG/5ML, EVERY 3 MONTHS
     Route: 042

REACTIONS (1)
  - HYPOTENSION [None]
